FAERS Safety Report 4411457-4 (Version None)
Quarter: 2004Q2

REPORT INFORMATION
  Report Type: 
  Country: None (occurrence: None)
  Receive Date: 20040630
  Receipt Date: 20040524
  Transmission Date: 20050107
  Serious: No
  Sender: FDA-Public Use
  Company Number: 04P-163-0261853-00

PATIENT
  Age: 73 Year
  Sex: Female
  Weight: 90.7194 kg

DRUGS (7)
  1. HUMIRA [Suspect]
     Indication: DRUG USE FOR UNKNOWN INDICATION
     Dosage: 40 MG, 1 IN 2 WK, SUBCUTANEOUS
     Route: 058
     Dates: start: 20040509
  2. FOLIC ACID [Concomitant]
  3. LEVOTHYROXINE SODIUM [Concomitant]
  4. CERIVASTATIN [Concomitant]
  5. CARISOPRODOL [Concomitant]
  6. MULTIVITAMIN [Concomitant]
  7. TAGAMET (TAGAMET DUAL ACTION) [Concomitant]

REACTIONS (3)
  - HEADACHE [None]
  - RASH GENERALISED [None]
  - WEIGHT INCREASED [None]
